FAERS Safety Report 6899016-5 (Version None)
Quarter: 2010Q3

REPORT INFORMATION
  Report Type: 
  Country: None (occurrence: None)
  Receive Date: 20100802
  Receipt Date: 20071210
  Transmission Date: 20110219
  Serious: No
  Sender: FDA-Public Use
  Company Number: US-PFIZER INC-2007104429

PATIENT
  Sex: Female

DRUGS (5)
  1. LYRICA [Suspect]
  2. STRATTERA [Interacting]
  3. CYMBALTA [Interacting]
  4. FIORINAL [Interacting]
  5. CLONAZEPAM [Interacting]

REACTIONS (5)
  - ANGER [None]
  - DRUG INTERACTION [None]
  - IRRITABILITY [None]
  - OEDEMA PERIPHERAL [None]
  - WEIGHT ABNORMAL [None]
